FAERS Safety Report 8344987-3 (Version None)
Quarter: 2012Q2

REPORT INFORMATION
  Report Type: 
  Country: None (occurrence: None)
  Receive Date: 20120508
  Receipt Date: 20120424
  Transmission Date: 20120825
  Serious: Yes (Hospitalization)
  Sender: FDA-Public Use
  Company Number: MX-ELI_LILLY_AND_COMPANY-MX201204008689

PATIENT
  Age: 54 Year
  Sex: Female

DRUGS (3)
  1. CLONAZEPAM [Concomitant]
  2. CYMBALTA [Suspect]
     Dosage: 30 MG, UNK
  3. GABAPENTIN [Concomitant]

REACTIONS (1)
  - PAIN [None]
